FAERS Safety Report 9475229 (Version 3)
Quarter: 2013Q3

REPORT INFORMATION
  Report Type: Spontaneous
  Country: CN (occurrence: None)
  Receive Date: 20130820
  Receipt Date: 20130903
  Transmission Date: 20140515
  Serious: Yes (Hospitalization)
  Sender: FDA-Public Use
  Company Number: SYM-2013-08979

PATIENT
  Age: 71 Year
  Sex: Male

DRUGS (6)
  1. 5 FU (FLUOROURACIL) [Suspect]
     Indication: COLORECTAL CANCER METASTATIC
     Dosage: 600 MG, EVERY OTHER WEEK, INTRAVENOUS BOLUS
     Route: 040
     Dates: start: 20130725, end: 20130725
  2. BLINDED THERAPY [Suspect]
     Indication: COLORECTAL CANCER METASTATIC
     Dosage: 200 MG, EVERY OTHER WEEK, INTRAVENOUS
     Route: 042
     Dates: start: 20030725, end: 20130725
  3. IRINOTECAN [Suspect]
     Indication: COLORECTAL CANCER METASTATIC
     Dosage: 270 MG, EVERY OTHER WEEK, INTRAVENOUS
     Route: 042
     Dates: start: 20130725, end: 20130725
  4. LEUCOVORIN (FOLINIC ACID) (SOLUTION FOR INFUSION) (FOLINIC ACID) [Suspect]
     Indication: COLORECTAL CANCER METASTATIC
     Dosage: 600 MG, EVERY OTHER WEEK, INTRAVENOUS
     Dates: start: 20130725, end: 20130725
  5. TRAMADOL (TRAMAODL) (TRAMADOL) [Concomitant]
  6. CHLORPROMAZINE (CHLORPROMAZINE) (CHLORPROMAZINE) [Concomitant]

REACTIONS (2)
  - Febrile neutropenia [None]
  - Oropharyngeal pain [None]
